FAERS Safety Report 6133367-7 (Version None)
Quarter: 2009Q1

REPORT INFORMATION
  Report Type: 
  Country: None (occurrence: None)
  Receive Date: 20090326
  Receipt Date: 20090316
  Transmission Date: 20090719
  Serious: Yes (Other)
  Sender: FDA-Public Use
  Company Number: GB-ELI_LILLY_AND_COMPANY-GB200806005226

PATIENT
  Sex: Female
  Weight: 45 kg

DRUGS (14)
  1. FORTEO [Suspect]
     Indication: OSTEOPOROSIS
  2. ALLOPURINOL [Concomitant]
     Dosage: 100 MG, DAILY (1/D)
     Route: 065
  3. CALCICHEW D3 [Concomitant]
     Indication: OSTEOPOROSIS
     Dosage: 2 D/F, DAILY (1/D)
     Route: 048
  4. DURAGESIC-100 [Concomitant]
     Indication: BACK PAIN
     Dosage: 150 UG, EVERY 72 HOURS
     Route: 065
  5. FLUOXETINE HCL [Concomitant]
     Indication: DEPRESSION
     Dosage: 40 MG, DAILY (1/D)
     Route: 048
  6. LANSOPRAZOLE [Concomitant]
     Indication: DYSPEPSIA
     Dosage: 30 MG, DAILY (1/D)
     Route: 048
  7. PREDNISOLONE [Concomitant]
     Indication: MULTIPLE MYELOMA
     Dosage: 5 MG, DAILY (1/D)
     Route: 048
  8. PROTELOS [Concomitant]
     Dosage: 2 G, UNKNOWN
     Route: 048
  9. TEMAZEPAM [Concomitant]
     Dosage: 10 MG, DAILY (1/D)
     Route: 065
  10. TRAMADOL HCL [Concomitant]
     Indication: BACK PAIN
     Dosage: 50 MG, DAILY (1/D)
     Route: 048
  11. GAVISCON                                /GFR/ [Concomitant]
     Dosage: UNK, UNKNOWN
     Route: 065
  12. LACTULOSE [Concomitant]
     Dosage: UNK, UNKNOWN
     Route: 065
  13. NULYTELY [Concomitant]
     Dosage: UNK, UNKNOWN
     Route: 065
  14. OXYCODONE HCL [Concomitant]
     Indication: BACK PAIN
     Dosage: 10 MG, DAILY (1/D)
     Route: 048

REACTIONS (1)
  - PAIN IN EXTREMITY [None]
